FAERS Safety Report 15478884 (Version 1)
Quarter: 2018Q4

REPORT INFORMATION
  Report Type: Spontaneous
  Country: US (occurrence: US)
  Receive Date: 20181003
  Receipt Date: 20181003
  Transmission Date: 20190205
  Serious: Yes (Life-Threatening, Disabling)
  Sender: FDA-Public Use
  Company Number: None

PATIENT
  Age: 70 Year
  Sex: Female
  Weight: 108.86 kg

DRUGS (6)
  1. WELLBUTRIN [Concomitant]
     Active Substance: BUPROPION HYDROCHLORIDE
  2. PROBIOTICV [Concomitant]
  3. CELEXA [Concomitant]
     Active Substance: CITALOPRAM HYDROBROMIDE
  4. M. VITAMIN [Concomitant]
  5. MULTIVIATMIN [Concomitant]
  6. CIPROFLOXACIN. [Suspect]
     Active Substance: CIPROFLOXACIN
     Indication: DIVERTICULITIS
     Dosage: ?          QUANTITY:1 DF DOSAGE FORM;OTHER ROUTE:NO MILK WITH IT?
     Dates: start: 20180626, end: 20180629

REACTIONS (11)
  - Heart rate increased [None]
  - Cardiac murmur [None]
  - Dizziness [None]
  - Dyspnoea [None]
  - Blood pressure increased [None]
  - Product complaint [None]
  - Asthma [None]
  - Dysgeusia [None]
  - Rash [None]
  - Hyperhidrosis [None]
  - Swollen tongue [None]

NARRATIVE: CASE EVENT DATE: 20180615
